FAERS Safety Report 6052071-7 (Version None)
Quarter: 2009Q1

REPORT INFORMATION
  Report Type: 
  Country: None (occurrence: None)
  Receive Date: 20090126
  Receipt Date: 20090119
  Transmission Date: 20090719
  Serious: Yes (Other)
  Sender: FDA-Public Use
  Company Number: CN-ROXANE LABORATORIES, INC.-2009-RO-00082RO

PATIENT
  Age: 62 Year
  Sex: Male

DRUGS (8)
  1. PREDNISONE [Suspect]
     Indication: IMMUNOSUPPRESSION
     Route: 048
  2. RADIOSONE [Suspect]
     Indication: IMMUNOSUPPRESSION
  3. TACROLIMUS [Suspect]
     Indication: PROPHYLAXIS AGAINST TRANSPLANT REJECTION
  4. ZADAXIN [Suspect]
     Indication: GRAFT VERSUS HOST DISEASE
     Dosage: 3.2MG
  5. ALG [Suspect]
     Indication: GRAFT VERSUS HOST DISEASE
     Route: 042
  6. ZENAPAX [Suspect]
     Route: 042
  7. ANTIBACTERIAL [Suspect]
  8. ANTIFUNGAL [Suspect]

REACTIONS (3)
  - BONE MARROW FAILURE [None]
  - GRAFT VERSUS HOST DISEASE [None]
  - LIVER TRANSPLANT REJECTION [None]
